FAERS Safety Report 4643180-5 (Version None)
Quarter: 2005Q2

REPORT INFORMATION
  Report Type: 
  Country: None (occurrence: None)
  Receive Date: 20050421
  Receipt Date: 20050307
  Transmission Date: 20051028
  Serious: Yes (Hospitalization)
  Sender: FDA-Public Use
  Company Number: 2005BI005319

PATIENT
  Age: 62 Year
  Sex: Female

DRUGS (11)
  1. NATALIZUMAB (NATALIZUMAB) [Suspect]
     Indication: CROHN'S DISEASE
     Dosage: 300 MG; QM; IV
     Route: 042
     Dates: start: 20041213, end: 20050207
  2. OMEPRAZOLE [Concomitant]
  3. SPIRONOLACTONE [Concomitant]
  4. GLIBENCLAMIDE [Concomitant]
  5. BROMAZEPAM [Concomitant]
  6. HYDROCHLOROTHIAZIDE [Concomitant]
  7. FUROSEMIDE [Concomitant]
  8. FUROSEMIDE [Concomitant]
  9. ACETYLCYSTEINE [Concomitant]
  10. TRAMADOL HCL [Concomitant]
  11. AMBROXOL [Concomitant]

REACTIONS (18)
  - ASTHMA [None]
  - ATELECTASIS [None]
  - BRONCHOPNEUMONIA [None]
  - CARDIAC FAILURE [None]
  - CARDIOMEGALY [None]
  - CORONARY ARTERY ATHEROSCLEROSIS [None]
  - DILATATION VENTRICULAR [None]
  - HYDROTHORAX [None]
  - INFLUENZA [None]
  - LARYNGEAL DISORDER [None]
  - LUNG NEOPLASM [None]
  - MALIGNANT PLEURAL EFFUSION [None]
  - MITRAL VALVE DISEASE [None]
  - MITRAL VALVE INCOMPETENCE [None]
  - MYOCARDIAL INFARCTION [None]
  - PLEURAL EFFUSION [None]
  - PULMONARY CONGESTION [None]
  - PULMONARY HYPERTENSION [None]
